FAERS Safety Report 10237194 (Version 1)
Quarter: 2014Q1

REPORT INFORMATION
  Report Type: Spontaneous
  Country: US (occurrence: None)
  Receive Date: 20140306
  Receipt Date: 20140306
  Transmission Date: 20141002
  Serious: Yes (Disabling)
  Sender: FDA-Public Use
  Company Number: 163-21880-13103615

PATIENT
  Age: 75 Year
  Sex: Male

DRUGS (14)
  1. REVLIMID (LENALIDOMIDE) (25 MILLIGRAM, CAPSULES) [Suspect]
     Indication: PLASMA CELL MYELOMA
     Dosage: 1 IN 1 D
     Route: 048
     Dates: start: 20130219, end: 20131010
  2. OXYCODONE HCL/ ACETAMINOPHEN (OXYCOCET) [Concomitant]
  3. DICLOFENAC SODIUM (DICLOFENAC SODIUM) [Concomitant]
  4. OMEPRAZOLE [Concomitant]
  5. CYCLOBENZAPRINE HCL (CYCLOBENZAPRINE HYDROCHLORIDE) [Concomitant]
  6. DEXAMETHASONE [Concomitant]
  7. DURAGESIC (FENTANYL) [Concomitant]
  8. FENTANYL CITRATE [Concomitant]
  9. FUROSEMIDE [Concomitant]
  10. NEXIUM (ESOMEPRAZOLE) [Concomitant]
  11. PROAIR HFA (SALBUTAMOL SULFATE) [Concomitant]
  12. ROPINIROLE HCL (ROPINIROLE HYDROCHLORIDE) [Concomitant]
  13. TEMAZEPAM [Concomitant]
  14. TRAZODONE HCL (TRAZODONE HYDROCHLORIDE) [Concomitant]

REACTIONS (1)
  - Pain [None]
